FAERS Safety Report 25937736 (Version 1)
Quarter: 2025Q4

REPORT INFORMATION
  Report Type: Spontaneous
  Country: US (occurrence: US)
  Receive Date: 20251018
  Receipt Date: 20251018
  Transmission Date: 20260117
  Serious: No
  Sender: NOVARTIS
  Company Number: US-002147023-NVSC2025US158070

PATIENT
  Age: 54 Year
  Sex: Male

DRUGS (1)
  1. LEQVIO [Suspect]
     Active Substance: INCLISIRAN SODIUM
     Indication: Product used for unknown indication
     Dosage: 284 MG (INITIAL DOS, 3 MONTHS, 6 MONTHS THEREAFTER)
     Route: 058
     Dates: start: 20250701, end: 20251008

REACTIONS (1)
  - Low density lipoprotein increased [Unknown]
